FAERS Safety Report 8470927-2 (Version None)
Quarter: 2012Q2

REPORT INFORMATION
  Report Type: 
  Country: None (occurrence: None)
  Receive Date: 20120620
  Receipt Date: 20120613
  Transmission Date: 20120825
  Serious: Yes (Life-Threatening, Hospitalization, Other)
  Sender: FDA-Public Use
  Company Number: DAV-AE-AMP-12-02

PATIENT
  Age: 21 Year
  Sex: Male

DRUGS (1)
  1. AMPICILLIN [Suspect]
     Indication: BACTERIAL INFECTION
     Dosage: 4 GRAMS TID, IV
     Route: 042

REACTIONS (3)
  - TOXICITY TO VARIOUS AGENTS [None]
  - VARICELLA [None]
  - THROMBOCYTOPENIA [None]
